FAERS Safety Report 25104920 (Version 2)
Quarter: 2025Q2

REPORT INFORMATION
  Report Type: Spontaneous
  Country: DE (occurrence: DE)
  Receive Date: 20250321
  Receipt Date: 20250521
  Transmission Date: 20250717
  Serious: Yes (Other)
  Sender: HIKMA
  Company Number: DE-HIKMA PHARMACEUTICALS USA INC.-DE-H14001-25-02461

PATIENT
  Age: 56 Year
  Sex: Male

DRUGS (1)
  1. CEFUROXIME SODIUM [Suspect]
     Active Substance: CEFUROXIME SODIUM
     Indication: Product used for unknown indication
     Route: 065
     Dates: start: 20250211

REACTIONS (6)
  - Hypotension [Recovered/Resolved]
  - Tachycardia [Recovered/Resolved]
  - Obstruction [Recovered/Resolved]
  - Erythema [Recovered/Resolved]
  - Supraventricular tachycardia [Recovered/Resolved]
  - Hypersensitivity [Recovered/Resolved]

NARRATIVE: CASE EVENT DATE: 20250211
